FAERS Safety Report 15393326 (Version 1)
Quarter: 2018Q3

REPORT INFORMATION
  Report Type: Other
  Country: US (occurrence: US)
  Receive Date: 20180917
  Receipt Date: 20180917
  Transmission Date: 20181010
  Serious: Yes (Hospitalization)
  Sender: FDA-Public Use
  Company Number: US-LEADIANT BIOSCIENCES INC-2018STPI000310

PATIENT
  Age: 76 Year
  Sex: Male

DRUGS (3)
  1. TRAMADOL. [Concomitant]
     Active Substance: TRAMADOL
  2. MATULANE [Suspect]
     Active Substance: PROCARBAZINE HYDROCHLORIDE
     Indication: NON-HODGKIN^S LYMPHOMA
     Dosage: 100 UNK, QD ON DAYS 2 TO 8 OF EVERY CHEMO CYCLE
     Route: 048
     Dates: start: 20180411
  3. DEXAMETHASON                       /00016001/ [Concomitant]
     Active Substance: DEXAMETHASONE

REACTIONS (1)
  - Infection [Not Recovered/Not Resolved]

NARRATIVE: CASE EVENT DATE: 20180510
